FAERS Safety Report 4341755-4 (Version None)
Quarter: 2004Q2

REPORT INFORMATION
  Report Type: 
  Country: None (occurrence: None)
  Receive Date: 20040415
  Receipt Date: 20040401
  Transmission Date: 20050107
  Serious: Yes (Death)
  Sender: FDA-Public Use
  Company Number: FR-JNJFOC-20040400399

PATIENT
  Age: 69 Year
  Sex: Male
  Weight: 64 kg

DRUGS (7)
  1. REOPRO [Suspect]
     Dosage: SEE IMAGE
     Route: 042
     Dates: start: 20040101
  2. REOPRO [Suspect]
     Dosage: SEE IMAGE
     Route: 042
     Dates: start: 20040116
  3. HEPARIN [Concomitant]
  4. PLAVIX [Concomitant]
  5. ATORVASTATIN CALCIUM [Concomitant]
  6. COVERSYL (PERINDOPRIL) [Concomitant]
  7. TENORMIN [Concomitant]

REACTIONS (2)
  - CEREBRAL HAEMATOMA [None]
  - CORONARY ARTERY STENOSIS [None]
